FAERS Safety Report 5947624-8 (Version None)
Quarter: 2008Q4

REPORT INFORMATION
  Report Type: 
  Country: None (occurrence: None)
  Receive Date: 20081107
  Receipt Date: 20081029
  Transmission Date: 20090506
  Serious: Yes (Other)
  Sender: FDA-Public Use
  Company Number: 08-001732

PATIENT
  Age: 48 Year
  Sex: Female

DRUGS (2)
  1. LOESTRIN 24 FE [Suspect]
     Indication: CONTRACEPTION
     Dosage: 20/1000 UG, QD, ORAL
     Route: 048
     Dates: start: 20080201
  2. ADVICOR [Concomitant]

REACTIONS (4)
  - CONTACT LENS INTOLERANCE [None]
  - CORNEAL DISORDER [None]
  - CORNEAL THINNING [None]
  - VISUAL ACUITY REDUCED [None]
